FAERS Safety Report 23115401 (Version 1)
Quarter: 2023Q4

REPORT INFORMATION
  Report Type: Spontaneous
  Country: US (occurrence: US)
  Receive Date: 20231027
  Receipt Date: 20231027
  Transmission Date: 20240110
  Serious: Yes (Other)
  Sender: FDA-Public Use
  Company Number: US-ABBVIE-5466446

PATIENT
  Sex: Female

DRUGS (3)
  1. ORILISSA [Suspect]
     Active Substance: ELAGOLIX SODIUM
     Indication: Product used for unknown indication
     Route: 048
  2. NORETHINDRONE [Suspect]
     Active Substance: NORETHINDRONE
     Indication: Contraception
     Route: 065
  3. XULANE [Suspect]
     Active Substance: ETHINYL ESTRADIOL\NORELGESTROMIN
     Indication: Contraception
     Route: 065

REACTIONS (5)
  - Ectopic pregnancy [Unknown]
  - Maternal exposure during pregnancy [Unknown]
  - Pregnancy on contraceptive [Unknown]
  - Drug ineffective [Unknown]
  - Pain [Unknown]
